FAERS Safety Report 10377686 (Version 2)
Quarter: 2014Q3

REPORT INFORMATION
  Report Type: Spontaneous
  Country: BR (occurrence: BR)
  Receive Date: 20140812
  Receipt Date: 20140812
  Transmission Date: 20150326
  Serious: Yes (Other)
  Sender: FDA-Public Use
  Company Number: PHHY2014BR097010

PATIENT
  Sex: Male

DRUGS (4)
  1. DIOVAN HCT [Suspect]
     Active Substance: HYDROCHLOROTHIAZIDE\VALSARTAN
     Dosage: ONE TABLET (320/12.5 MG), DAILY
     Route: 048
     Dates: start: 201406
  2. DIOVAN HCT [Suspect]
     Active Substance: HYDROCHLOROTHIAZIDE\VALSARTAN
     Dosage: ONE TABLET (160/12.5 MG), DAILY
     Route: 048
     Dates: start: 201311
  3. AMLODIPINE [Suspect]
     Active Substance: AMLODIPINE BESYLATE
     Dosage: UNK
  4. CALTREN [Suspect]
     Active Substance: NITRENDIPINE
     Indication: BLOOD PRESSURE INCREASED
     Dosage: 10 MG, DAILY
     Route: 048

REACTIONS (3)
  - Hypertension [Recovered/Resolved]
  - Fluid retention [Unknown]
  - Oedema peripheral [Recovered/Resolved]
